FAERS Safety Report 5821595-7 (Version None)
Quarter: 2008Q3

REPORT INFORMATION
  Report Type: 
  Country: None (occurrence: None)
  Receive Date: 20080724
  Receipt Date: 20080720
  Transmission Date: 20090109
  Serious: Yes (Other)
  Sender: FDA-Public Use
  Company Number: DE-BRISTOL-MYERS SQUIBB COMPANY-14270359

PATIENT
  Age: 36 Year
  Sex: Male
  Weight: 60 kg

DRUGS (5)
  1. ZERIT [Suspect]
     Route: 048
     Dates: start: 20080719
  2. ALCOHOL [Suspect]
     Dates: start: 20080719
  3. CARBAMAZEPINE [Suspect]
     Dosage: FORMULATION: TABLET. 80 TABLETS OF CARBAMAZEPIN 200.
     Dates: start: 20080719
  4. KALETRA [Suspect]
     Dates: start: 20080719
  5. ZIAGEN [Suspect]
     Dates: start: 20080719

REACTIONS (5)
  - BREATH ODOUR [None]
  - COMA [None]
  - INTENTIONAL OVERDOSE [None]
  - MYDRIASIS [None]
  - SUICIDE ATTEMPT [None]
